FAERS Safety Report 4499042-X (Version None)
Quarter: 2004Q4

REPORT INFORMATION
  Report Type: 
  Country: None (occurrence: None)
  Receive Date: 20040927
  Receipt Date: 20040601
  Transmission Date: 20050328
  Serious: No
  Sender: FDA-Public Use
  Company Number: USA040668969

PATIENT
  Age: 17 Year
  Sex: Male
  Weight: 64 kg

DRUGS (4)
  1. STRATTERA [Suspect]
     Indication: ATTENTION DEFICIT/HYPERACTIVITY DISORDER
     Dosage: 80 MG IN THE MORNING
     Dates: start: 20040529
  2. ADDERALL 20 [Concomitant]
  3. NEURONTIN [Concomitant]
  4. ZOLOFT [Concomitant]

REACTIONS (3)
  - ANGER [None]
  - IRRITABILITY [None]
  - SOMNOLENCE [None]
